FAERS Safety Report 9006091 (Version 1)
Quarter: 2013Q1

REPORT INFORMATION
  Report Type: Spontaneous
  Country: AU (occurrence: AU)
  Receive Date: 20130109
  Receipt Date: 20130109
  Transmission Date: 20140127
  Serious: Yes (Other)
  Sender: FDA-Public Use
  Company Number: PHHY2013AU001882

PATIENT
  Sex: Male

DRUGS (2)
  1. CICLOSPORIN [Suspect]
  2. PREDNISOLONE [Concomitant]

REACTIONS (2)
  - Proteinuria [Unknown]
  - Hypertension [Unknown]
